FAERS Safety Report 18662056 (Version 65)
Quarter: 2025Q1

REPORT INFORMATION
  Report Type: Report from Study
  Country: CA (occurrence: CA)
  Receive Date: 20201224
  Receipt Date: 20250325
  Transmission Date: 20250409
  Serious: Yes (Other)
  Sender: TAKEDA
  Company Number: CA-TAKEDA-CA201937791

PATIENT
  Age: 46 Year
  Sex: Female

DRUGS (49)
  1. ICATIBANT [Suspect]
     Active Substance: ICATIBANT ACETATE
     Indication: Hereditary angioedema with C1 esterase inhibitor deficiency
  2. ICATIBANT [Suspect]
     Active Substance: ICATIBANT ACETATE
  3. ICATIBANT [Suspect]
     Active Substance: ICATIBANT ACETATE
  4. ICATIBANT [Suspect]
     Active Substance: ICATIBANT ACETATE
  5. ICATIBANT [Suspect]
     Active Substance: ICATIBANT ACETATE
  6. ICATIBANT [Suspect]
     Active Substance: ICATIBANT ACETATE
  7. ICATIBANT [Suspect]
     Active Substance: ICATIBANT ACETATE
  8. ICATIBANT [Suspect]
     Active Substance: ICATIBANT ACETATE
  9. ICATIBANT [Suspect]
     Active Substance: ICATIBANT ACETATE
  10. ICATIBANT [Suspect]
     Active Substance: ICATIBANT ACETATE
  11. ICATIBANT [Suspect]
     Active Substance: ICATIBANT ACETATE
  12. ICATIBANT [Suspect]
     Active Substance: ICATIBANT ACETATE
  13. ICATIBANT [Suspect]
     Active Substance: ICATIBANT ACETATE
  14. ICATIBANT [Suspect]
     Active Substance: ICATIBANT ACETATE
  15. ICATIBANT [Suspect]
     Active Substance: ICATIBANT ACETATE
  16. ICATIBANT [Suspect]
     Active Substance: ICATIBANT ACETATE
  17. ICATIBANT [Suspect]
     Active Substance: ICATIBANT ACETATE
  18. ICATIBANT [Suspect]
     Active Substance: ICATIBANT ACETATE
  19. ICATIBANT [Suspect]
     Active Substance: ICATIBANT ACETATE
  20. ICATIBANT [Suspect]
     Active Substance: ICATIBANT ACETATE
  21. ICATIBANT [Suspect]
     Active Substance: ICATIBANT ACETATE
  22. ICATIBANT [Suspect]
     Active Substance: ICATIBANT ACETATE
  23. ICATIBANT [Suspect]
     Active Substance: ICATIBANT ACETATE
  24. ICATIBANT [Suspect]
     Active Substance: ICATIBANT ACETATE
  25. ICATIBANT [Suspect]
     Active Substance: ICATIBANT ACETATE
  26. ICATIBANT [Suspect]
     Active Substance: ICATIBANT ACETATE
  27. ICATIBANT [Suspect]
     Active Substance: ICATIBANT ACETATE
  28. ICATIBANT [Suspect]
     Active Substance: ICATIBANT ACETATE
  29. ICATIBANT [Suspect]
     Active Substance: ICATIBANT ACETATE
  30. ICATIBANT [Suspect]
     Active Substance: ICATIBANT ACETATE
  31. ICATIBANT [Suspect]
     Active Substance: ICATIBANT ACETATE
  32. ICATIBANT [Suspect]
     Active Substance: ICATIBANT ACETATE
  33. ICATIBANT [Suspect]
     Active Substance: ICATIBANT ACETATE
  34. ICATIBANT [Suspect]
     Active Substance: ICATIBANT ACETATE
  35. ICATIBANT [Suspect]
     Active Substance: ICATIBANT ACETATE
  36. ICATIBANT [Suspect]
     Active Substance: ICATIBANT ACETATE
  37. ICATIBANT [Suspect]
     Active Substance: ICATIBANT ACETATE
  38. ICATIBANT [Suspect]
     Active Substance: ICATIBANT ACETATE
  39. TAKHZYRO [Suspect]
     Active Substance: LANADELUMAB-FLYO
     Indication: Hereditary angioedema with C1 esterase inhibitor deficiency
     Dosage: 300 MILLIGRAM, Q2WEEKS
     Dates: start: 20220411, end: 20220718
  40. TAKHZYRO [Suspect]
     Active Substance: LANADELUMAB-FLYO
     Dosage: UNK UNK, Q2WEEKS
  41. HAEGARDA [Suspect]
     Active Substance: HUMAN C1-ESTERASE INHIBITOR
     Indication: Product used for unknown indication
     Dosage: 5000 INTERNATIONAL UNIT, 3/WEEK
     Dates: start: 2021
  42. HAEGARDA [Suspect]
     Active Substance: HUMAN C1-ESTERASE INHIBITOR
     Dosage: 6000 INTERNATIONAL UNIT, QOD
  43. HAEGARDA [Suspect]
     Active Substance: HUMAN C1-ESTERASE INHIBITOR
     Dosage: 5000 INTERNATIONAL UNIT, 3/WEEK
  44. HYDROMORPHONE [Concomitant]
     Active Substance: HYDROMORPHONE
     Indication: Product used for unknown indication
  45. JANUVIA [Concomitant]
     Active Substance: SITAGLIPTIN PHOSPHATE
     Indication: Product used for unknown indication
  46. Diamicron [Concomitant]
     Indication: Product used for unknown indication
  47. WARFARIN [Concomitant]
     Active Substance: WARFARIN
     Indication: Product used for unknown indication
  48. SYNTHROID [Concomitant]
     Active Substance: LEVOTHYROXINE SODIUM
     Indication: Product used for unknown indication
  49. TYLENOL [Concomitant]
     Active Substance: ACETAMINOPHEN
     Indication: Product used for unknown indication

REACTIONS (19)
  - Intestinal obstruction [Not Recovered/Not Resolved]
  - Foreign body in throat [Recovering/Resolving]
  - Constipation [Not Recovered/Not Resolved]
  - Lymphadenopathy [Recovered/Resolved]
  - Stress [Not Recovered/Not Resolved]
  - Hypersomnia [Not Recovered/Not Resolved]
  - Bowel movement irregularity [Unknown]
  - Medical device site haemorrhage [Unknown]
  - Drug ineffective [Unknown]
  - Umbilical hernia [Not Recovered/Not Resolved]
  - Pain [Unknown]
  - Sedation [Unknown]
  - Feeling abnormal [Recovered/Resolved]
  - Product use in unapproved indication [Unknown]
  - Abdominal distension [Unknown]
  - Hereditary angioedema [Recovered/Resolved]
  - Headache [Recovered/Resolved]
  - Dizziness [Unknown]
  - Injection site pain [Recovered/Resolved]

NARRATIVE: CASE EVENT DATE: 20200707
